FAERS Safety Report 8378146-5 (Version None)
Quarter: 2012Q2

REPORT INFORMATION
  Report Type: 
  Country: None (occurrence: None)
  Receive Date: 20120522
  Receipt Date: 20120510
  Transmission Date: 20120825
  Serious: Yes (Hospitalization)
  Sender: FDA-Public Use
  Company Number: US-ROCHE-1067866

PATIENT
  Age: 85 Year
  Sex: Male
  Weight: 68.5 kg

DRUGS (6)
  1. OXYCONTIN [Concomitant]
     Dates: start: 20100101
  2. MABTHERA [Suspect]
     Indication: B-CELL LYMPHOMA
     Route: 042
     Dates: start: 20120223
  3. CRESTOR [Concomitant]
     Dates: start: 20000101
  4. ALLOPURINOL [Concomitant]
     Dates: start: 20120209
  5. GLUCOSAMINE [Concomitant]
     Dates: start: 20110901
  6. INOTUZUMAB OZOGAMICIN [Suspect]
     Indication: B-CELL LYMPHOMA
     Route: 042
     Dates: start: 20120224

REACTIONS (2)
  - FATIGUE [None]
  - DEHYDRATION [None]
